FAERS Safety Report 11594076 (Version 2)
Quarter: 2015Q4

REPORT INFORMATION
  Report Type: Report from Study
  Country: FR (occurrence: FR)
  Receive Date: 20151005
  Receipt Date: 20151109
  Transmission Date: 20160304
  Serious: Yes (Other)
  Sender: FDA-Public Use
  Company Number: FR-ASTELLAS-2015US035813

PATIENT

DRUGS (16)
  1. FOLINIC ACID [Suspect]
     Active Substance: LEUCOVORIN
     Indication: HEPATOBILIARY CANCER
     Dosage: UNK UNK, UNKNOWN FREQ.
     Route: 065
  2. IRINOTECAN [Suspect]
     Active Substance: IRINOTECAN
     Indication: HEPATOBILIARY CANCER
     Dosage: UNK UNK, UNKNOWN FREQ.
     Route: 065
  3. CISPLATIN. [Suspect]
     Active Substance: CISPLATIN
     Indication: HEPATOBILIARY CANCER
     Dosage: UNK UNK, UNKNOWN FREQ.
     Route: 065
  4. CARBOPLATIN. [Suspect]
     Active Substance: CARBOPLATIN
     Indication: HEPATOBILIARY CANCER
     Dosage: UNK, UNKNOWN FREQ.
     Route: 065
  5. PACLITAXEL. [Suspect]
     Active Substance: PACLITAXEL
     Indication: HEPATOBILIARY CANCER
     Dosage: UNK, UNKNOWN FREQ.
     Route: 065
  6. FLUOROURACIL. [Suspect]
     Active Substance: FLUOROURACIL
     Dosage: UNK , UNKNOWN FREQ. INTRAVENOUS BOLUS
     Route: 042
  7. CAPECITABINE. [Suspect]
     Active Substance: CAPECITABINE
     Indication: HEPATOBILIARY CANCER
     Dosage: UNK UNK, UNKNOWN FREQ.
     Route: 065
  8. SUNITINIB [Suspect]
     Active Substance: SUNITINIB
     Indication: HEPATOBILIARY CANCER
     Dosage: 37.5 MG PER DAY
     Route: 048
  9. FLUOROURACIL. [Suspect]
     Active Substance: FLUOROURACIL
     Indication: HEPATOBILIARY CANCER
     Dosage: UNK, UNKNOWN FREQ.INTRAVENOUS (NOT OTHERWISE SPECIFIED)
     Route: 042
  10. DOCETAXEL. [Suspect]
     Active Substance: DOCETAXEL
     Indication: HEPATOBILIARY CANCER
     Dosage: UNK, UNKNOWN FREQ.
     Route: 065
  11. CETUXIMAB [Suspect]
     Active Substance: CETUXIMAB
     Indication: HEPATOBILIARY CANCER
     Dosage: UNK UNK, UNKNOWN FREQ.
     Route: 065
  12. MITOMYCIN. [Suspect]
     Active Substance: MITOMYCIN
     Indication: HEPATOBILIARY CANCER
     Dosage: UNK, UNKNOWN FREQ.
     Route: 065
  13. SORAFENIB [Suspect]
     Active Substance: SORAFENIB
     Indication: HEPATOBILIARY CANCER
     Dosage: UNK, UNKNOWN FREQ.
     Route: 065
  14. ERLOTINIB [Suspect]
     Active Substance: ERLOTINIB
     Indication: HEPATOBILIARY CANCER
     Dosage: UNK UNK, UNKNOWN FREQ.
     Route: 065
  15. OXALIPLATIN. [Suspect]
     Active Substance: OXALIPLATIN
     Indication: HEPATOBILIARY CANCER
     Dosage: UNK, UNKNOWN FREQ.
     Route: 065
  16. GEMCITABINE [Suspect]
     Active Substance: GEMCITABINE\GEMCITABINE HYDROCHLORIDE
     Indication: HEPATOBILIARY CANCER
     Dosage: UNK UNK, UNKNOWN FREQ.
     Route: 065

REACTIONS (6)
  - Thrombocytopenia [Unknown]
  - Cholangitis [Unknown]
  - Anaemia [Unknown]
  - Neuropathy peripheral [Unknown]
  - Neutropenia [Unknown]
  - Neurotoxicity [Unknown]
